FAERS Safety Report 15059017 (Version 1)
Quarter: 2018Q2

REPORT INFORMATION
  Report Type: Spontaneous
  Country: US (occurrence: US)
  Receive Date: 20180625
  Receipt Date: 20180625
  Transmission Date: 20180711
  Serious: Yes (Other)
  Sender: FDA-Public Use
  Company Number: US-MYLANLABS-2018M1043604

PATIENT
  Age: 20 Year
  Sex: Male
  Weight: 44.4 kg

DRUGS (6)
  1. PREDNISONE. [Suspect]
     Active Substance: PREDNISONE
     Dosage: 2.5 MG, PM
     Route: 048
     Dates: start: 20180515, end: 20180517
  2. DHEA [Concomitant]
     Active Substance: PRASTERONE
     Indication: PRODUCT USED FOR UNKNOWN INDICATION
     Dosage: UNK
     Dates: start: 2013
  3. PREDNISONE. [Suspect]
     Active Substance: PREDNISONE
     Dosage: 7.5 MG, QD
     Dates: start: 20180517, end: 20180517
  4. FLUDROCORTISONE ACETATE. [Concomitant]
     Active Substance: FLUDROCORTISONE ACETATE
     Indication: PRODUCT USED FOR UNKNOWN INDICATION
     Dosage: UNK
     Dates: start: 2013
  5. LEVOTHYROXINE SODIUM. [Concomitant]
     Active Substance: LEVOTHYROXINE SODIUM
     Indication: PRODUCT USED FOR UNKNOWN INDICATION
     Dosage: UNK
     Dates: start: 2013
  6. PREDNISONE. [Suspect]
     Active Substance: PREDNISONE
     Indication: ADRENAL INSUFFICIENCY
     Dosage: 5 MG, AM
     Route: 048
     Dates: start: 20180515, end: 20180517

REACTIONS (12)
  - Dizziness [Unknown]
  - Heart rate increased [Unknown]
  - Headache [Unknown]
  - Vomiting [Unknown]
  - Asthenia [Unknown]
  - Blood potassium decreased [Unknown]
  - Blood lactic acid increased [Unknown]
  - Insomnia [Unknown]
  - Abdominal discomfort [Unknown]
  - Acidosis [Unknown]
  - Blood bicarbonate increased [Unknown]
  - Adrenocortical insufficiency acute [Unknown]

NARRATIVE: CASE EVENT DATE: 20180517
